FAERS Safety Report 4849206-8 (Version None)
Quarter: 2005Q4

REPORT INFORMATION
  Report Type: 
  Country: None (occurrence: None)
  Receive Date: 20051209
  Receipt Date: 20051201
  Transmission Date: 20060501
  Serious: Yes (Other)
  Sender: FDA-Public Use
  Company Number: US-MERCK-0512USA00184

PATIENT
  Age: 54 Year
  Sex: Male
  Weight: 87 kg

DRUGS (10)
  1. PLAVIX [Suspect]
     Indication: STENT PLACEMENT
     Route: 048
     Dates: start: 20050826
  2. ZOCOR [Suspect]
     Route: 048
     Dates: start: 20050826, end: 20051027
  3. ZOCOR [Suspect]
     Route: 048
     Dates: end: 20050826
  4. GEMFIBROZIL [Suspect]
     Route: 048
     Dates: start: 20050826
  5. PRINIVIL [Concomitant]
     Route: 048
  6. METOPROLOL TARTRATE [Concomitant]
     Route: 065
  7. ASPIRIN [Concomitant]
     Route: 048
     Dates: end: 20051005
  8. ASPIRIN [Concomitant]
     Route: 048
     Dates: start: 20051005
  9. INSULIN LISPRO [Concomitant]
     Route: 058
  10. INSULIN GLARGINE [Concomitant]
     Route: 058

REACTIONS (8)
  - BLOOD CREATINE PHOSPHOKINASE INCREASED [None]
  - DYSURIA [None]
  - HAEMORRHAGE URINARY TRACT [None]
  - MUSCLE ATROPHY [None]
  - MUSCLE SPASMS [None]
  - POLLAKIURIA [None]
  - PROTEIN URINE PRESENT [None]
  - RED BLOOD CELL ABNORMALITY [None]
